FAERS Safety Report 15908261 (Version 1)
Quarter: 2019Q1

REPORT INFORMATION
  Report Type: Spontaneous
  Country: US (occurrence: US)
  Receive Date: 20190204
  Receipt Date: 20190204
  Transmission Date: 20190417
  Serious: No
  Sender: FDA-Public Use
  Company Number: US-ABBVIE-18K-163-2220973-00

PATIENT
  Sex: Female

DRUGS (3)
  1. HUMIRA [Suspect]
     Active Substance: ADALIMUMAB
     Route: 058
     Dates: start: 20140422
  2. HUMIRA [Suspect]
     Active Substance: ADALIMUMAB
     Indication: PRODUCT USED FOR UNKNOWN INDICATION
     Route: 058
     Dates: start: 20130528
  3. HUMIRA [Suspect]
     Active Substance: ADALIMUMAB
     Dosage: FEW WEEKS TO TWO MONTHS
     Route: 058
     Dates: start: 201504

REACTIONS (2)
  - Joint stiffness [Recovered/Resolved]
  - Arthralgia [Recovered/Resolved]
